FAERS Safety Report 13703114 (Version 2)
Quarter: 2017Q3

REPORT INFORMATION
  Report Type: Report from Study
  Country: AR (occurrence: AR)
  Receive Date: 20170629
  Receipt Date: 20170725
  Transmission Date: 20171127
  Serious: Yes (Other)
  Sender: FDA-Public Use
  Company Number: PHHY2017AR094076

PATIENT
  Sex: Male

DRUGS (1)
  1. EXFORGE [Suspect]
     Active Substance: AMLODIPINE BESYLATE\VALSARTAN
     Indication: HYPERTENSION
     Dosage: 1 DF, QD (AMLODIPINE 10, HYDROCHLOROTHIAZIDE 12.5, VALSARTAN 160) (UNITS NOT PROVIDED)
     Route: 065
     Dates: start: 2012

REACTIONS (3)
  - Macular hole [Recovered/Resolved]
  - Ocular hypertension [Recovering/Resolving]
  - Metamorphopsia [Recovered/Resolved]

NARRATIVE: CASE EVENT DATE: 2014
